FAERS Safety Report 23270094 (Version 1)
Quarter: 2023Q4

REPORT INFORMATION
  Report Type: Report from Study
  Country: CA (occurrence: CA)
  Receive Date: 20231207
  Receipt Date: 20231207
  Transmission Date: 20240109
  Serious: Yes (Hospitalization, Other)
  Sender: FDA-Public Use
  Company Number: CA-JNJFOC-20230405966

PATIENT
  Age: 71 Year
  Sex: Male

DRUGS (1)
  1. REMICADE [Suspect]
     Active Substance: INFLIXIMAB
     Indication: Colitis ulcerative
     Dosage: ON 03-APR-2023, THE PATIENT RECEIVED 76TH 600 MG INFLIXIMAB, INFUSION AND PARTIAL MAYO COMPLETED.?ON
     Route: 041
     Dates: start: 20140611

REACTIONS (7)
  - Escherichia infection [Unknown]
  - Arthritis infective [Unknown]
  - Haematochezia [Recovering/Resolving]
  - Knee arthroplasty [Unknown]
  - General physical health deterioration [Recovering/Resolving]
  - Joint stiffness [Unknown]
  - Arthralgia [Unknown]

NARRATIVE: CASE EVENT DATE: 20230101
